FAERS Safety Report 19671127 (Version 1)
Quarter: 2021Q3

REPORT INFORMATION
  Report Type: Spontaneous
  Country: US (occurrence: US)
  Receive Date: 20210806
  Receipt Date: 20210806
  Transmission Date: 20211014
  Serious: No
  Sender: FDA-Public Use
  Company Number: US-SA-2021SA259152

PATIENT
  Age: 18 Year
  Sex: Male

DRUGS (1)
  1. DUPIXENT [Suspect]
     Active Substance: DUPILUMAB
     Indication: DERMATITIS ATOPIC
     Dosage: 300 MG, QOW
     Route: 058
     Dates: start: 20201231

REACTIONS (4)
  - Pyrexia [Recovering/Resolving]
  - Hyperhidrosis [Recovering/Resolving]
  - Urinary tract infection [Recovering/Resolving]
  - Pollakiuria [Recovering/Resolving]
